FAERS Safety Report 7706214-7 (Version None)
Quarter: 2011Q3

REPORT INFORMATION
  Report Type: 
  Country: None (occurrence: None)
  Receive Date: 20110824
  Receipt Date: 20110812
  Transmission Date: 20111222
  Serious: Yes (Hospitalization)
  Sender: FDA-Public Use
  Company Number: US-SANOFI-AVENTIS-2011SA050177

PATIENT
  Age: 75 Year
  Sex: Male
  Weight: 115.19 kg

DRUGS (14)
  1. METOPROLOL TARTRATE [Concomitant]
     Indication: HYPERTENSION
     Dates: start: 20090101
  2. DOCETAXEL [Suspect]
     Route: 041
     Dates: start: 20110622, end: 20110622
  3. VINORELBINE TARTRATE [Concomitant]
     Dates: start: 20110713
  4. ALLEGRA [Concomitant]
     Indication: SEASONAL ALLERGY
     Dates: start: 20090101
  5. INDOMETHACIN [Concomitant]
     Indication: GOUT
     Dates: start: 20110710
  6. BLINDED THERAPY [Suspect]
     Route: 042
     Dates: start: 20110622, end: 20110622
  7. PROSCAR [Concomitant]
     Dates: start: 19850101
  8. BLINDED THERAPY [Suspect]
     Indication: NON-SMALL CELL LUNG CANCER STAGE IV
     Route: 042
     Dates: start: 20110420, end: 20110420
  9. PRILOSEC [Concomitant]
     Dates: start: 20000101
  10. ESOMEPRAZOLE MAGNESIUM [Concomitant]
     Dates: start: 20100101
  11. DOCETAXEL [Suspect]
     Indication: NON-SMALL CELL LUNG CANCER STAGE IV
     Route: 041
     Dates: start: 20110420, end: 20110420
  12. MONOPRIL [Concomitant]
     Indication: HYPERTENSION
     Dates: start: 20030101
  13. ZOCOR [Concomitant]
     Dates: start: 20090101
  14. LORTAB [Concomitant]
     Indication: HEADACHE
     Dates: start: 20110426

REACTIONS (1)
  - PNEUMONIA [None]
